FAERS Safety Report 4864630-5 (Version None)
Quarter: 2005Q4

REPORT INFORMATION
  Report Type: 
  Country: None (occurrence: None)
  Receive Date: 20051201
  Receipt Date: 20050701
  Transmission Date: 20060501
  Serious: No
  Sender: FDA-Public Use
  Company Number: 2005PV000207

PATIENT
  Age: 65 Year
  Sex: Female
  Weight: 79.8331 kg

DRUGS (11)
  1. BYETTA [Suspect]
     Indication: DIABETES MELLITUS NON-INSULIN-DEPENDENT
     Dosage: 5 MCG; BID; SC
     Route: 058
     Dates: start: 20050628
  2. SYNTHROID [Concomitant]
  3. NEXIUM [Concomitant]
  4. EZETIMIBE [Concomitant]
  5. LIPITOR [Concomitant]
  6. NORVASC [Concomitant]
  7. COREG [Concomitant]
  8. LIPITOR [Concomitant]
  9. AVANDIA [Concomitant]
  10. AMARYL [Concomitant]
  11. HYDROCHLOROTHIAZIDE [Concomitant]

REACTIONS (7)
  - BLOOD GLUCOSE DECREASED [None]
  - BLOOD GLUCOSE INCREASED [None]
  - DECREASED APPETITE [None]
  - DYSPEPSIA [None]
  - HYPERHIDROSIS [None]
  - NAUSEA [None]
  - TREMOR [None]
